FAERS Safety Report 9371702 (Version 1)
Quarter: 2013Q2

REPORT INFORMATION
  Report Type: Spontaneous
  Country: US (occurrence: US)
  Receive Date: 20130627
  Receipt Date: 20130627
  Transmission Date: 20140414
  Serious: Yes (Other)
  Sender: FDA-Public Use
  Company Number: US-PFIZER INC-2013190527

PATIENT
  Age: 4 Year
  Sex: Male
  Weight: 17.23 kg

DRUGS (1)
  1. QUILLIVANT XR [Suspect]
     Indication: ATTENTION DEFICIT/HYPERACTIVITY DISORDER
     Dosage: 10 MG, 1X/DAY
     Dates: start: 201306, end: 201306

REACTIONS (2)
  - Rash generalised [Recovered/Resolved]
  - Off label use [Recovered/Resolved]
